FAERS Safety Report 24398995 (Version 1)
Quarter: 2024Q4

REPORT INFORMATION
  Report Type: Spontaneous
  Country: US (occurrence: None)
  Receive Date: 20241004
  Receipt Date: 20241004
  Transmission Date: 20250115
  Serious: Yes (Life-Threatening, Hospitalization)
  Sender: Public
  Company Number: None

PATIENT
  Age: 82 Year
  Sex: Female
  Weight: 80.5 kg

DRUGS (7)
  1. WARFARIN [Suspect]
     Active Substance: WARFARIN
     Indication: Atrial fibrillation
     Dosage: OTHER FREQUENCY : WEEKLY DOSE 35 MG;?
     Route: 048
  2. WARFARIN [Suspect]
     Active Substance: WARFARIN
     Indication: Cerebrovascular accident
  3. WARFARIN [Suspect]
     Active Substance: WARFARIN
     Indication: Pulmonary embolism
  4. ASPIRIN [Concomitant]
     Active Substance: ASPIRIN
  5. TYLENOL [Concomitant]
     Active Substance: ACETAMINOPHEN
  6. Diltiazem 180 mg [Concomitant]
  7. HYDROXYUREA [Concomitant]
     Active Substance: HYDROXYUREA

REACTIONS (9)
  - Fall [None]
  - Head injury [None]
  - Arthralgia [None]
  - Haematoma [None]
  - Subarachnoid haemorrhage [None]
  - Intracranial mass [None]
  - Transfusion [None]
  - Transfusion [None]
  - Therapy interrupted [None]

NARRATIVE: CASE EVENT DATE: 20240918
